FAERS Safety Report 13508988 (Version 2)
Quarter: 2017Q2

REPORT INFORMATION
  Report Type: Spontaneous
  Country: IT (occurrence: IT)
  Receive Date: 20170503
  Receipt Date: 20170523
  Transmission Date: 20170830
  Serious: Yes (Hospitalization)
  Sender: FDA-Public Use
  Company Number: IT-TEVA-764748ACC

PATIENT
  Age: 71 Year
  Sex: Female

DRUGS (1)
  1. OLANZAPINA TEVA [Suspect]
     Active Substance: OLANZAPINE

REACTIONS (5)
  - Cerebral haematoma [Unknown]
  - Muscle atrophy [Unknown]
  - Balance disorder [Unknown]
  - Abdominal pain upper [Unknown]
  - Head injury [Unknown]
